FAERS Safety Report 24850798 (Version 1)
Quarter: 2025Q1

REPORT INFORMATION
  Report Type: Spontaneous
  Country: FR (occurrence: FR)
  Receive Date: 20250116
  Receipt Date: 20250116
  Transmission Date: 20250409
  Serious: Yes (Hospitalization, Other)
  Sender: ALEXION PHARMACEUTICALS
  Company Number: FR-SA-2024SA365724

PATIENT
  Age: 11 Day
  Weight: 2.7 kg

DRUGS (6)
  1. BEYFORTUS [Suspect]
     Active Substance: NIRSEVIMAB-ALIP
     Indication: Respiratory syncytial virus immunisation
     Route: 065
  2. BEYFORTUS [Suspect]
     Active Substance: NIRSEVIMAB-ALIP
     Route: 065
  3. BEYFORTUS [Suspect]
     Active Substance: NIRSEVIMAB-ALIP
     Route: 065
  4. BEYFORTUS [Suspect]
     Active Substance: NIRSEVIMAB-ALIP
     Route: 065
  5. CEFACLOR [Concomitant]
     Active Substance: CEFACLOR
  6. BACTRIM [Concomitant]
     Active Substance: SULFAMETHOXAZOLE\TRIMETHOPRIM

REACTIONS (3)
  - Respiratory syncytial virus bronchiolitis [Recovered/Resolved]
  - Nasopharyngitis [Recovered/Resolved]
  - Nasal congestion [Recovered/Resolved]
